FAERS Safety Report 24458253 (Version 1)
Quarter: 2024Q4

REPORT INFORMATION
  Report Type: Report from Study
  Country: US (occurrence: US)
  Receive Date: 20241018
  Receipt Date: 20241018
  Transmission Date: 20250115
  Serious: Yes (Other)
  Sender: JOHNSON AND JOHNSON
  Company Number: US-JNJFOC-20241028949

PATIENT
  Age: 60 Year
  Sex: Female

DRUGS (4)
  1. STELARA [Suspect]
     Active Substance: USTEKINUMAB
     Indication: Crohn^s disease
     Route: 058
  2. STELARA [Suspect]
     Active Substance: USTEKINUMAB
  3. ONDANSETRON [Concomitant]
     Active Substance: ONDANSETRON
  4. POTASSIUM ACETATE [Concomitant]
     Active Substance: POTASSIUM ACETATE
     Dosage: 2 MEQ/ML

REACTIONS (10)
  - Ileostomy [Not Recovered/Not Resolved]
  - Upper respiratory tract congestion [Not Recovered/Not Resolved]
  - Fistula [Not Recovered/Not Resolved]
  - Female genital tract fistula [Not Recovered/Not Resolved]
  - Pyrexia [Not Recovered/Not Resolved]
  - Blood calcium increased [Not Recovered/Not Resolved]
  - Blood potassium decreased [Not Recovered/Not Resolved]
  - Abdominal pain [Not Recovered/Not Resolved]
  - Bronchitis [Not Recovered/Not Resolved]
  - Off label use [Unknown]

NARRATIVE: CASE EVENT DATE: 20241001
